FAERS Safety Report 9768874 (Version 2)
Quarter: 2013Q4

REPORT INFORMATION
  Report Type: Spontaneous
  Country: US (occurrence: US)
  Receive Date: 20131218
  Receipt Date: 20131218
  Transmission Date: 20140711
  Serious: Yes (Death, Other)
  Sender: FDA-Public Use
  Company Number: US-ROCHE-1288931

PATIENT
  Age: 37 Year
  Sex: Female
  Weight: 59.02 kg

DRUGS (4)
  1. KADCYLA [Suspect]
     Indication: HER-2 POSITIVE BREAST CANCER
     Route: 042
     Dates: start: 20130402, end: 20130716
  2. XGEVA [Concomitant]
     Indication: METASTASES TO BONE
     Route: 058
     Dates: start: 20110228
  3. ZOLADEX [Concomitant]
     Indication: BREAST CANCER METASTATIC
     Route: 058
     Dates: start: 20130723
  4. FASLODEX [Concomitant]
     Indication: BREAST CANCER METASTATIC
     Route: 042
     Dates: start: 20130723

REACTIONS (4)
  - Vision blurred [Recovered/Resolved with Sequelae]
  - Eye ulcer [Recovered/Resolved]
  - Conjunctivitis [Recovered/Resolved]
  - Death [Fatal]
